FAERS Safety Report 14999801 (Version 1)
Quarter: 2018Q2

REPORT INFORMATION
  Report Type: Spontaneous
  Country: DE (occurrence: DE)
  Receive Date: 20180612
  Receipt Date: 20180612
  Transmission Date: 20180711
  Serious: Yes (Other)
  Sender: FDA-Public Use
  Company Number: DE-TEVA-2018-DE-906243

PATIENT
  Sex: Female

DRUGS (1)
  1. DICLOFENAC 7,5 MG [Suspect]
     Active Substance: DICLOFENAC
     Indication: OSTEOARTHRITIS
     Dosage: 7.5 MILLIGRAM DAILY;
     Route: 065
     Dates: start: 201803

REACTIONS (2)
  - Atrial fibrillation [Unknown]
  - Abdominal pain upper [Unknown]
